FAERS Safety Report 8467446-6 (Version None)
Quarter: 2012Q2

REPORT INFORMATION
  Report Type: 
  Country: None (occurrence: None)
  Receive Date: 20120626
  Receipt Date: 20120425
  Transmission Date: 20120825
  Serious: Yes (Other)
  Sender: FDA-Public Use
  Company Number: US-ASTRAZENECA-2012SE19528

PATIENT
  Age: 54 Year
  Sex: Female

DRUGS (14)
  1. CAPRELSA [Suspect]
     Indication: THYROID CANCER
     Route: 048
  2. CAPRELSA [Suspect]
     Route: 048
  3. DIPHENOXYLATE HCL + ATROPINE SULFATE [Concomitant]
     Dosage: 2.5-0.025 MG
     Route: 048
  4. VITAMIN D [Concomitant]
     Route: 048
  5. ZOMETA [Concomitant]
     Route: 048
  6. CALCIUM 600 PLUS D HIGH POTENCY [Concomitant]
     Dosage: 600-400 UNIT
     Route: 048
  7. LEVOTHYROXINE SODIUM [Concomitant]
     Route: 048
  8. HUMALOG FLEXPEN [Concomitant]
     Dosage: 100 UNIT/ML
     Route: 058
  9. GLIPIZIDE [Concomitant]
     Route: 048
  10. LEVEMIR [Concomitant]
     Dosage: 100 UNIT/ML
     Route: 058
  11. POTASSIUM CHLORIDE CRYS CR [Concomitant]
     Route: 048
  12. MULTI-VITAMINS [Concomitant]
     Route: 048
  13. NUVIGIL [Concomitant]
     Route: 048
  14. PRAVASTATIN SODIUM [Concomitant]
     Route: 048

REACTIONS (5)
  - ERYTHEMA [None]
  - FATIGUE [None]
  - ELECTROCARDIOGRAM QT PROLONGED [None]
  - OEDEMA PERIPHERAL [None]
  - BACK PAIN [None]
